FAERS Safety Report 16543938 (Version 1)
Quarter: 2019Q3

REPORT INFORMATION
  Report Type: Spontaneous
  Country: US (occurrence: US)
  Receive Date: 20190709
  Receipt Date: 20190709
  Transmission Date: 20191004
  Serious: No
  Sender: FDA-Public Use
  Company Number: US-LUPIN PHARMACEUTICALS INC.-2019-01557

PATIENT
  Age: 41 Year
  Sex: Female
  Weight: 136 kg

DRUGS (1)
  1. DOXYCYCLINE FOR ORAL SUSPENSION USP 25 MG/5 ML [Suspect]
     Active Substance: DOXYCYCLINE
     Indication: ACNE CYSTIC
     Dosage: 60 MILLILITER, BID
     Route: 048
     Dates: start: 2017

REACTIONS (1)
  - Blood glucose increased [Not Recovered/Not Resolved]

NARRATIVE: CASE EVENT DATE: 201810
